FAERS Safety Report 5989098-7 (Version None)
Quarter: 2008Q4

REPORT INFORMATION
  Report Type: 
  Country: None (occurrence: None)
  Receive Date: 20081204
  Receipt Date: 20081124
  Transmission Date: 20090506
  Serious: No
  Sender: FDA-Public Use
  Company Number: 2008-186656-NL

PATIENT
  Age: 24 Month
  Sex: Male

DRUGS (5)
  1. CHORIONIC GONADTROPIN [Suspect]
     Indication: CRYPTORCHISM
     Dosage: 500 IU
     Dates: start: 19950919, end: 19950919
  2. CHORIONIC GONADTROPIN [Suspect]
     Indication: CRYPTORCHISM
     Dosage: 500 IU
     Dates: start: 19951002, end: 19951002
  3. CHORIONIC GONADTROPIN [Suspect]
     Indication: CRYPTORCHISM
     Dosage: 500 IU
     Dates: start: 19951009, end: 19951009
  4. CHORIONIC GONADTROPIN [Suspect]
     Indication: CRYPTORCHISM
     Dosage: 500 IU
     Dates: start: 19951013, end: 19951013
  5. CHORIONIC GONADTROPIN [Suspect]
     Indication: CRYPTORCHISM
     Dosage: 500 IU
     Dates: start: 19951016, end: 19951016

REACTIONS (6)
  - FALL [None]
  - HAIR GROWTH ABNORMAL [None]
  - LENNOX-GASTAUT SYNDROME [None]
  - LOSS OF CONSCIOUSNESS [None]
  - PSYCHOMOTOR HYPERACTIVITY [None]
  - RESTLESSNESS [None]
